FAERS Safety Report 8202681-3 (Version None)
Quarter: 2012Q1

REPORT INFORMATION
  Report Type: 
  Country: None (occurrence: None)
  Receive Date: 20120227
  Receipt Date: 20120104
  Transmission Date: 20120608
  Serious: Yes (Hospitalization)
  Sender: FDA-Public Use
  Company Number: 342531

PATIENT
  Age: 62 Year
  Sex: Female
  Weight: 81.6 kg

DRUGS (6)
  1. VICTOZA [Suspect]
     Indication: TYPE 2 DIABETES MELLITUS
     Dosage: SUBCUTANEOUS ; 1.8 MG, QD, SUBCUTANEOUS
     Route: 058
     Dates: start: 20110501, end: 20111105
  2. VICTOZA [Suspect]
     Indication: TYPE 2 DIABETES MELLITUS
     Dosage: SUBCUTANEOUS ; 1.8 MG, QD, SUBCUTANEOUS
     Route: 058
     Dates: end: 20111105
  3. LEVEMIR FLEXPEN (INSULIN DETEMIR) SOLUTION FOR INJECTION [Concomitant]
  4. LISINOPRIL [Concomitant]
  5. LEVOTHYROXINE SODIUM [Concomitant]
  6. APIDRA [Concomitant]

REACTIONS (1)
  - PANCREATITIS [None]
